FAERS Safety Report 17414153 (Version 3)
Quarter: 2020Q3

REPORT INFORMATION
  Report Type: Spontaneous
  Country: DE (occurrence: DE)
  Receive Date: 20200213
  Receipt Date: 20200810
  Transmission Date: 20201102
  Serious: Yes (Hospitalization, Other)
  Sender: FDA-Public Use
  Company Number: DE-ASTRAZENECA-2020SE20752

PATIENT
  Age: 21489 Day
  Sex: Male
  Weight: 136 kg

DRUGS (12)
  1. CRESTOR [Suspect]
     Active Substance: ROSUVASTATIN CALCIUM
     Indication: HYPERCHOLESTEROLAEMIA
     Dosage: 10.0MG UNKNOWN
     Route: 048
     Dates: end: 202002
  2. ALLOPURINOL. [Concomitant]
     Active Substance: ALLOPURINOL
  3. CRESTOR [Suspect]
     Active Substance: ROSUVASTATIN CALCIUM
     Indication: HYPERCHOLESTEROLAEMIA
     Route: 048
     Dates: start: 201803
  4. L?THYROX [Concomitant]
     Active Substance: LEVOTHYROXINE SODIUM
  5. NEBIVOLOL. [Concomitant]
     Active Substance: NEBIVOLOL
  6. INSULIN GLARGIN [Concomitant]
     Active Substance: INSULIN GLARGINE
  7. ANTRA MUPS [Concomitant]
     Active Substance: OMEPRAZOLE MAGNESIUM
  8. TOUJEO 300 [Concomitant]
     Indication: TYPE 2 DIABETES MELLITUS
     Dosage: 0?0?40
     Route: 058
     Dates: start: 2019
  9. IRBESARTAN. [Concomitant]
     Active Substance: IRBESARTAN
  10. JANUVIA [Concomitant]
     Active Substance: SITAGLIPTIN PHOSPHATE
     Indication: DIABETES MELLITUS
     Dosage: 2?0?0
     Dates: start: 2019
  11. ACETYLSALICYLIC ACID [Concomitant]
     Active Substance: ASPIRIN
     Dosage: 2.0DF UNKNOWN
  12. HUMALOG 200 [Concomitant]
     Indication: TYPE 2 DIABETES MELLITUS
     Dosage: 50?60?50
     Route: 058
     Dates: start: 2019

REACTIONS (8)
  - Pain [Unknown]
  - Paralysis [Unknown]
  - Bleeding time prolonged [Unknown]
  - Blood creatine phosphokinase increased [Unknown]
  - Arthralgia [Unknown]
  - Spinal stenosis [Recovering/Resolving]
  - Monoparesis [Unknown]
  - Muscular weakness [Unknown]

NARRATIVE: CASE EVENT DATE: 201902
